FAERS Safety Report 15800792 (Version 1)
Quarter: 2019Q1

REPORT INFORMATION
  Report Type: Spontaneous
  Country: US (occurrence: US)
  Receive Date: 20190109
  Receipt Date: 20190109
  Transmission Date: 20190417
  Serious: No
  Sender: FDA-Public Use
  Company Number: US-009507513-1901USA000743

PATIENT
  Sex: Female

DRUGS (5)
  1. ASMANEX [Suspect]
     Active Substance: MOMETASONE FUROATE
     Indication: ASTHMA
     Dosage: 1 PUFF,QD (30 DOSES)
     Route: 048
  2. GLUCOPHAGE XR [Concomitant]
     Active Substance: METFORMIN HYDROCHLORIDE
  3. GABAPENTIN. [Concomitant]
     Active Substance: GABAPENTIN
  4. LISINOPRIL. [Concomitant]
     Active Substance: LISINOPRIL
  5. WELCHOL [Concomitant]
     Active Substance: COLESEVELAM HYDROCHLORIDE

REACTIONS (3)
  - Chest discomfort [Recovered/Resolved]
  - Incorrect dose administered [Unknown]
  - Product quality issue [Unknown]

NARRATIVE: CASE EVENT DATE: 201811
